FAERS Safety Report 6784376-6 (Version None)
Quarter: 2010Q2

REPORT INFORMATION
  Report Type: 
  Country: None (occurrence: None)
  Receive Date: 20100622
  Receipt Date: 20100611
  Transmission Date: 20101027
  Serious: Yes (Death, Hospitalization, Disabling)
  Sender: FDA-Public Use
  Company Number: US-BAXTER-2010BH015073

PATIENT
  Age: 71 Year
  Sex: Female

DRUGS (6)
  1. DIANEAL [Suspect]
     Indication: PERITONEAL DIALYSIS
     Route: 033
     Dates: start: 20081101, end: 20100503
  2. DIANEAL [Suspect]
     Route: 033
     Dates: start: 20081101, end: 20100503
  3. DIANEAL [Suspect]
     Route: 033
     Dates: start: 20081101, end: 20100503
  4. DIANEAL [Suspect]
     Indication: PERITONEAL DIALYSIS
     Route: 033
     Dates: start: 20081101, end: 20100503
  5. DIANEAL [Suspect]
     Route: 033
     Dates: start: 20081101, end: 20100503
  6. DIANEAL [Suspect]
     Route: 033
     Dates: start: 20081101, end: 20100503

REACTIONS (3)
  - CONDITION AGGRAVATED [None]
  - DEATH [None]
  - NEOPLASM MALIGNANT [None]
